FAERS Safety Report 9362893 (Version 1)
Quarter: 2013Q2

REPORT INFORMATION
  Report Type: Spontaneous
  Country: IT (occurrence: IT)
  Receive Date: 20130624
  Receipt Date: 20130624
  Transmission Date: 20140414
  Serious: Yes (Hospitalization)
  Sender: FDA-Public Use
  Company Number: IT-ROCHE-1239800

PATIENT
  Age: 43 Year
  Sex: Male

DRUGS (9)
  1. CLONAZEPAM [Suspect]
     Indication: PRODUCT USED FOR UNKNOWN INDICATION
     Dosage: TABLET 2 MG
     Route: 048
     Dates: start: 20130611, end: 20130611
  2. NORMIX [Concomitant]
     Route: 048
  3. PORTOLAC [Concomitant]
     Route: 048
  4. PANTORC [Concomitant]
     Route: 048
  5. HALCION [Concomitant]
     Route: 048
  6. INVEGA [Concomitant]
     Dosage: TABLET 9 MG
     Route: 048
  7. AKINETON [Concomitant]
     Dosage: 4 MG RP
     Route: 048
  8. LYRICA [Concomitant]
     Route: 048
  9. HUMATIN [Concomitant]
     Dosage: 250 2 TABLETS
     Route: 065

REACTIONS (3)
  - Hallucination, auditory [Recovered/Resolved]
  - Hypokinesia [Recovered/Resolved]
  - Intentional overdose [Unknown]
